FAERS Safety Report 7883621-3 (Version None)
Quarter: 2011Q4

REPORT INFORMATION
  Report Type: 
  Country: None (occurrence: None)
  Receive Date: 20111102
  Receipt Date: 20111025
  Transmission Date: 20120403
  Serious: Yes (Other)
  Sender: FDA-Public Use
  Company Number: CA-US-EMD SERONO, INC.-7057554

PATIENT
  Sex: Female

DRUGS (9)
  1. DERMATAP [Concomitant]
  2. METRONIDAZOLE [Concomitant]
  3. FLOVIN [Concomitant]
  4. FLOVENT [Concomitant]
  5. IBUPROFEN [Concomitant]
  6. REBIF [Suspect]
     Indication: RELAPSING-REMITTING MULTIPLE SCLEROSIS
     Route: 058
     Dates: start: 20110426
  7. VENTALIN [Concomitant]
  8. TYLENOL W/ CODEINE NO. 3 [Concomitant]
  9. VENTOLIN [Concomitant]

REACTIONS (22)
  - SOMNOLENCE [None]
  - FATIGUE [None]
  - HEADACHE [None]
  - INJECTION SITE HAEMATOMA [None]
  - NASOPHARYNGITIS [None]
  - OROPHARYNGEAL PAIN [None]
  - MALAISE [None]
  - CONSTIPATION [None]
  - ASTHENIA [None]
  - RETCHING [None]
  - CONTUSION [None]
  - ABDOMINAL PAIN [None]
  - APHAGIA [None]
  - LARGE INTESTINE PERFORATION [None]
  - NEPHROLITHIASIS [None]
  - NAUSEA [None]
  - ABDOMINAL DISCOMFORT [None]
  - DECREASED APPETITE [None]
  - WHITE BLOOD CELL COUNT INCREASED [None]
  - HYPOTHYROIDISM [None]
  - INFLUENZA LIKE ILLNESS [None]
  - INJECTION SITE ERYTHEMA [None]
